FAERS Safety Report 6910425-8 (Version None)
Quarter: 2010Q3

REPORT INFORMATION
  Report Type: 
  Country: None (occurrence: None)
  Receive Date: 20100806
  Receipt Date: 20100727
  Transmission Date: 20110219
  Serious: Yes (Death, Other)
  Sender: FDA-Public Use
  Company Number: BR-PFIZER INC-2010094013

PATIENT
  Age: 81 Year
  Sex: Female

DRUGS (1)
  1. VIAGRA [Suspect]
     Dosage: 50 MG, 1X/DAY
     Route: 048
     Dates: start: 20080918

REACTIONS (3)
  - CARDIAC DISORDER [None]
  - DEATH [None]
  - HAEMATOCHEZIA [None]
